FAERS Safety Report 6656606-2 (Version None)
Quarter: 2010Q1

REPORT INFORMATION
  Report Type: 
  Country: None (occurrence: None)
  Receive Date: 20100329
  Receipt Date: 20100322
  Transmission Date: 20100710
  Serious: Yes (Other)
  Sender: FDA-Public Use
  Company Number: US-AMGEN-QUU401127

PATIENT
  Age: 61 Year
  Sex: Male

DRUGS (1)
  1. ARANESP [Suspect]
     Indication: RENAL FAILURE CHRONIC
     Dates: start: 20100223

REACTIONS (6)
  - CHILLS [None]
  - GENERALISED OEDEMA [None]
  - LETHARGY [None]
  - MALAISE [None]
  - MOBILITY DECREASED [None]
  - WEIGHT INCREASED [None]
